FAERS Safety Report 7460523-8 (Version None)
Quarter: 2011Q2

REPORT INFORMATION
  Report Type: 
  Country: None (occurrence: None)
  Receive Date: 20110505
  Receipt Date: 20110421
  Transmission Date: 20111010
  Serious: Yes (Other)
  Sender: FDA-Public Use
  Company Number: US-CELGENEUS-163-20785-11031796

PATIENT
  Sex: Male

DRUGS (13)
  1. FORTICAL [Suspect]
     Route: 065
  2. DIGOXIN [Suspect]
     Dosage: 125 MILLIGRAM
     Route: 048
  3. BUMEX [Suspect]
     Dosage: 2 MILLIGRAM
     Route: 048
  4. THALOMID [Suspect]
     Indication: MULTIPLE MYELOMA
     Dosage: 50 MILLIGRAM
     Route: 048
     Dates: start: 20060301
  5. RENVELA [Suspect]
     Dosage: 800 MILLIGRAM
     Route: 048
  6. LISINOPRIL [Suspect]
     Dosage: 5 MILLIGRAM
     Route: 065
  7. DIOVAN [Suspect]
     Dosage: 320 MILLIGRAM
     Route: 048
  8. THALOMID [Suspect]
     Dosage: 100 MILLIGRAM
     Route: 048
     Dates: start: 20110311
  9. COUMADIN [Suspect]
     Dosage: 5 MILLIGRAM
     Route: 065
  10. METOPROLOL SUCCINATE [Suspect]
     Dosage: 25 MILLIGRAM
     Route: 048
  11. CLONIDINE [Suspect]
     Dosage: .1 MILLIGRAM
     Route: 048
  12. SENSIPAR [Suspect]
     Dosage: 60 MILLIGRAM
     Route: 048
  13. OXYCODONE [Suspect]
     Dosage: 5 MILLIGRAM
     Route: 048

REACTIONS (3)
  - BONE PAIN [None]
  - RENAL IMPAIRMENT [None]
  - OSTEOLYSIS [None]
